FAERS Safety Report 6555599-6 (Version None)
Quarter: 2010Q1

REPORT INFORMATION
  Report Type: 
  Country: None (occurrence: None)
  Receive Date: 20100128
  Receipt Date: 20100120
  Transmission Date: 20100710
  Serious: Yes (Other)
  Sender: FDA-Public Use
  Company Number: JP-ASTRAZENECA-2008AP08152

PATIENT
  Age: 691 Month
  Sex: Male
  Weight: 80 kg

DRUGS (5)
  1. CRESTOR [Suspect]
     Indication: HYPERLIPIDAEMIA
     Route: 048
     Dates: start: 20080711, end: 20080912
  2. AMARYL [Concomitant]
     Indication: DIABETES MELLITUS
     Route: 048
     Dates: start: 20071009
  3. SEIBULE [Concomitant]
     Indication: DIABETES MELLITUS
     Route: 048
     Dates: start: 20071009
  4. PREMINENT [Concomitant]
     Indication: ESSENTIAL HYPERTENSION
     Route: 048
     Dates: start: 20071026
  5. ACTOS [Concomitant]
     Indication: DIABETES MELLITUS
     Route: 048
     Dates: start: 20080124

REACTIONS (1)
  - GYNAECOMASTIA [None]
